FAERS Safety Report 17615192 (Version 1)
Quarter: 2020Q2

REPORT INFORMATION
  Report Type: Spontaneous
  Country: US (occurrence: US)
  Receive Date: 20200402
  Receipt Date: 20200402
  Transmission Date: 20200713
  Serious: No
  Sender: FDA-Public Use
  Company Number: US-PFIZER INC-2020136359

PATIENT
  Age: 56 Year
  Sex: Female

DRUGS (1)
  1. IBRANCE [Suspect]
     Active Substance: PALBOCICLIB
     Dosage: 100 MG, CYCLIC (DAILY, 21OF 28 DAYS)
     Route: 048
     Dates: start: 20200201

REACTIONS (3)
  - Alopecia [Unknown]
  - Neutrophil count decreased [Unknown]
  - Full blood count decreased [Unknown]
